FAERS Safety Report 6690002-7 (Version None)
Quarter: 2010Q2

REPORT INFORMATION
  Report Type: 
  Country: None (occurrence: None)
  Receive Date: 20100421
  Receipt Date: 20100408
  Transmission Date: 20101027
  Serious: Yes (Other)
  Sender: FDA-Public Use
  Company Number: PHEH2008US01022

PATIENT
  Sex: Male

DRUGS (21)
  1. ELIDEL [Suspect]
     Dosage: UNK
     Route: 061
     Dates: start: 20030328
  2. CHEMOTHERAPEUTICS NOS [Concomitant]
  3. BIOTENE [Concomitant]
  4. NYSTATIN [Concomitant]
  5. DOCUSATE [Concomitant]
  6. MIRALAX [Concomitant]
  7. NEUPOGEN [Concomitant]
     Dosage: UNK
     Dates: start: 20050426
  8. LORAZEPAM [Concomitant]
  9. AMOXICILLIN [Concomitant]
  10. AUGMENTIN '125' [Concomitant]
  11. BACTRIM [Concomitant]
     Dosage: UNK
  12. VINCRISTINE [Concomitant]
     Dosage: UNK
  13. TOPOTECAN [Concomitant]
     Dosage: 0.6 MG, UNK
  14. CYCLOPHOSPHAMIDE [Concomitant]
  15. DEXAMETHASONE [Concomitant]
     Dosage: 7.5 MG, QD
  16. ZOFRAN [Concomitant]
     Dosage: 8 MG, QD
  17. CYTOXAN [Concomitant]
     Dosage: 190 MG, UNK
  18. CEFTRIAXONE [Concomitant]
     Dosage: 75 MG, UNK
     Dates: start: 20050518
  19. MORPHINE [Concomitant]
     Dosage: 1 MG, PRN
  20. NEUPOGEN [Concomitant]
     Dosage: 100 MCG, QD
     Route: 058
     Dates: start: 20050720
  21. BIOTENE [Concomitant]
     Dosage: 5 ML, UNK
     Route: 049

REACTIONS (37)
  - ABDOMINAL PAIN [None]
  - ADENOTONSILLECTOMY [None]
  - AGGRESSION [None]
  - ALOPECIA [None]
  - CENTRAL VENOUS CATHETERISATION [None]
  - CERUMEN REMOVAL [None]
  - CHRONIC TONSILLITIS [None]
  - CONSTIPATION [None]
  - CONTUSION [None]
  - DECREASED APPETITE [None]
  - DYSPHAGIA [None]
  - EAR PAIN [None]
  - ECZEMA [None]
  - EPISTAXIS [None]
  - GASTROINTESTINAL TUBE INSERTION [None]
  - LARYNGOSCOPY [None]
  - LOCAL SWELLING [None]
  - LYMPHADENOPATHY [None]
  - MUCOSAL INFLAMMATION [None]
  - NECK MASS [None]
  - NIGHT SWEATS [None]
  - OBSTRUCTIVE AIRWAYS DISORDER [None]
  - PAIN IN JAW [None]
  - PANCYTOPENIA [None]
  - PHARYNGITIS [None]
  - PHARYNGITIS STREPTOCOCCAL [None]
  - PRURITUS [None]
  - PYREXIA [None]
  - RADIATION SKIN INJURY [None]
  - RADIOTHERAPY [None]
  - RESPIRATORY DISTRESS [None]
  - RHABDOMYOSARCOMA [None]
  - SCOLIOSIS [None]
  - TOOTH DISORDER [None]
  - TOOTH HYPOPLASIA [None]
  - WEIGHT DECREASED [None]
  - WHITE BLOOD CELL COUNT ABNORMAL [None]
